FAERS Safety Report 8804852 (Version 1)
Quarter: 2012Q4

REPORT INFORMATION
  Report Type: 
  Country: US (occurrence: US)
  Receive Date: 20120924
  Receipt Date: 20120924
  Transmission Date: 20130627
  Serious: Yes (Other)
  Sender: FDA-Public Use
  Company Number: US-PFIZER INC-2012235081

PATIENT
  Age: 65 Year
  Sex: Male
  Weight: 72.56 kg

DRUGS (6)
  1. AMLODIPINE BESILATE [Suspect]
     Indication: HYPERTENSION
     Dosage: 5 mg, UNK
     Dates: start: 2012
  2. LISINOPRIL [Concomitant]
     Dosage: 20 mg, 2x/day
  3. HYDROCHLOROTHIAZIDE [Concomitant]
     Dosage: 25 mg, UNK
  4. ASPIRIN [Concomitant]
     Dosage: 325 mg, UNK
  5. LIPITOR [Concomitant]
     Dosage: UNK
  6. ATENOLOL [Concomitant]
     Dosage: 50 mg, UNK

REACTIONS (2)
  - Cerebrovascular accident [Unknown]
  - Palpitations [Unknown]
